FAERS Safety Report 9815847 (Version 7)
Quarter: 2014Q3

REPORT INFORMATION
  Report Type: Report from Study
  Country: US (occurrence: US)
  Receive Date: 20140114
  Receipt Date: 20140717
  Transmission Date: 20150326
  Serious: Yes (Hospitalization)
  Sender: FDA-Public Use
  Company Number: US-JNJFOC-20140103845

PATIENT
  Age: 18 Year
  Sex: Female
  Weight: 44.4 kg

DRUGS (9)
  1. FAMOTIDINE. [Concomitant]
     Active Substance: FAMOTIDINE
     Route: 065
  2. REMICADE [Suspect]
     Active Substance: INFLIXIMAB
     Indication: INFLAMMATORY BOWEL DISEASE
     Route: 042
     Dates: start: 20090420
  3. PREDNISONE. [Concomitant]
     Active Substance: PREDNISONE
     Route: 065
  4. OXYCODONE [Concomitant]
     Active Substance: OXYCODONE
     Route: 065
  5. REMICADE [Suspect]
     Active Substance: INFLIXIMAB
     Indication: INFLAMMATORY BOWEL DISEASE
     Route: 042
     Dates: start: 20060210
  6. 5-ASA [Concomitant]
     Active Substance: MESALAMINE
     Route: 048
  7. ANTIBIOTICS FOR IBD [Concomitant]
     Indication: INFLAMMATORY BOWEL DISEASE
     Route: 065
  8. AZATHIOPRINE. [Concomitant]
     Active Substance: AZATHIOPRINE
     Route: 065
  9. PROBIOTICS [Concomitant]
     Active Substance: PROBIOTICS NOS
     Route: 065

REACTIONS (5)
  - Abdominal abscess [Recovered/Resolved]
  - Gastrointestinal haemorrhage [Recovered/Resolved]
  - Peritonitis [Recovered/Resolved]
  - Dehydration [Unknown]
  - Gastrointestinal anastomotic leak [Recovered/Resolved]

NARRATIVE: CASE EVENT DATE: 20130603
